FAERS Safety Report 23907408 (Version 1)
Quarter: 2024Q2

REPORT INFORMATION
  Report Type: Spontaneous
  Country: AU (occurrence: AU)
  Receive Date: 20240528
  Receipt Date: 20240528
  Transmission Date: 20240716
  Serious: Yes (Hospitalization, Other)
  Sender: FDA-Public Use
  Company Number: AU-CIPLA (EU) LIMITED-2024AU05247

PATIENT

DRUGS (16)
  1. LENALIDOMIDE [Suspect]
     Active Substance: LENALIDOMIDE
     Indication: Plasma cell myeloma
     Dosage: 10 MILLIGRAM, UNK
     Route: 048
     Dates: start: 20220517, end: 20240222
  2. RIVAROXABAN [Suspect]
     Active Substance: RIVAROXABAN
     Indication: Thrombosis prophylaxis
     Dosage: 10 MILLIGRAM, UNK, FILM-COATED TABLET
     Route: 048
     Dates: start: 20221007
  3. DARATUMUMAB [Suspect]
     Active Substance: DARATUMUMAB
     Indication: Plasma cell myeloma
     Dosage: 15 MILLILITER, UNK
     Route: 058
     Dates: start: 20220419, end: 20240105
  4. TECLISTAMAB [Suspect]
     Active Substance: TECLISTAMAB
     Indication: Plasma cell myeloma
     Dosage: 6.7 MILLILITER, UNK
     Route: 058
     Dates: start: 20220420, end: 20240301
  5. LYRICA [Concomitant]
     Active Substance: PREGABALIN
     Indication: Peripheral sensory neuropathy
     Dosage: 75 MILLIGRAM, UNK
     Route: 065
     Dates: start: 20170101
  6. SPIRIVA RESPIMAT [Concomitant]
     Active Substance: TIOTROPIUM BROMIDE
     Indication: Viral infection
     Dosage: 1 DOSE UNSPECIFIED
     Route: 065
     Dates: start: 20220902
  7. AMOXICILLIN TRIHYDRATE [Concomitant]
     Active Substance: AMOXICILLIN
     Indication: Product used for unknown indication
     Dosage: UNK
     Route: 065
  8. ERGOCALCIFEROL [Concomitant]
     Active Substance: ERGOCALCIFEROL
     Indication: Nutritional supplementation
     Dosage: 2000 INTERNATIONAL UNIT, UNK
     Route: 048
     Dates: start: 20180101
  9. MAGNESIUM [Concomitant]
     Active Substance: MAGNESIUM
     Indication: Nutritional supplementation
     Dosage: 150 MILLIGRAM, UNK
     Route: 065
     Dates: start: 20170101
  10. OMEPRAZOLE [Concomitant]
     Active Substance: DONEPEZIL HYDROCHLORIDE\OMEPRAZOLE\OMEPRAZOLE MAGNESIUM
     Indication: Prophylaxis
     Dosage: 20 MILLIGRAM, UNK
     Route: 048
     Dates: start: 20220419
  11. PAMIDRONATE DISODIUM [Concomitant]
     Active Substance: PAMIDRONATE DISODIUM
     Indication: Asthenia
     Dosage: 90 MILLILITER, UNK
     Route: 042
     Dates: start: 20240105
  12. ACETAMINOPHEN [Concomitant]
     Active Substance: ACETAMINOPHEN
     Indication: Ligament sprain
     Dosage: 1 GRAM, UNK
     Route: 048
     Dates: start: 20220807
  13. SULFAMETHOXAZOLE [Concomitant]
     Active Substance: SULFAMETHOXAZOLE
     Indication: Prophylaxis
     Dosage: UNK
     Route: 065
     Dates: start: 20220419
  14. TRIMETHOPRIM [Concomitant]
     Active Substance: TRIMETHOPRIM
     Indication: Prophylaxis
     Dosage: UNK
     Route: 048
     Dates: start: 20220419
  15. CLAVULANATE POTASSIUM [Concomitant]
     Active Substance: CLAVULANATE POTASSIUM
     Indication: Viral infection
     Dosage: UNK
     Route: 048
     Dates: start: 20220908
  16. NORMAL IMMUNOGLOBULIN [Concomitant]
     Indication: Supportive care
     Dosage: 40 GRAM, UNK
     Route: 048
     Dates: start: 20221006

REACTIONS (5)
  - Pneumonia [Not Recovered/Not Resolved]
  - Loss of consciousness [Unknown]
  - Haemoptysis [Unknown]
  - Dizziness [Unknown]
  - Productive cough [Unknown]

NARRATIVE: CASE EVENT DATE: 20240307
